FAERS Safety Report 12480361 (Version 1)
Quarter: 2016Q2

REPORT INFORMATION
  Report Type: Spontaneous
  Country: CA (occurrence: CA)
  Receive Date: 20160620
  Receipt Date: 20160620
  Transmission Date: 20160815
  Serious: Yes (Hospitalization, Other)
  Sender: FDA-Public Use
  Company Number: CA-TARO PHARMACEUTICALS USA.,INC-2016SUN00309

PATIENT
  Age: 90 Year
  Sex: Female

DRUGS (1)
  1. TARO-WARFARIN TABLETS 5MG [Suspect]
     Active Substance: WARFARIN SODIUM
     Indication: PRODUCT USED FOR UNKNOWN INDICATION
     Dosage: UNK
     Route: 048

REACTIONS (3)
  - Product quality issue [Unknown]
  - Phlebitis [Unknown]
  - International normalised ratio increased [Unknown]
